FAERS Safety Report 5981147-5 (Version None)
Quarter: 2008Q4

REPORT INFORMATION
  Report Type: 
  Country: None (occurrence: None)
  Receive Date: 20081205
  Receipt Date: 20081126
  Transmission Date: 20090506
  Serious: Yes (Other)
  Sender: FDA-Public Use
  Company Number: A0749441A

PATIENT
  Age: 43 Year
  Sex: Male
  Weight: 93.2 kg

DRUGS (1)
  1. ALTABAX [Suspect]
     Indication: STAPHYLOCOCCAL INFECTION
     Dosage: 1APP CYCLIC
     Route: 045
     Dates: start: 20080801, end: 20080814

REACTIONS (7)
  - DEAFNESS [None]
  - DEAFNESS UNILATERAL [None]
  - EAR DISCOMFORT [None]
  - EAR DISORDER [None]
  - MEDICATION ERROR [None]
  - TINNITUS [None]
  - VESTIBULAR FUNCTION TEST ABNORMAL [None]
